FAERS Safety Report 9148662 (Version 1)
Quarter: 2013Q1

REPORT INFORMATION
  Report Type: Spontaneous
  Country: US (occurrence: None)
  Receive Date: 20130207
  Receipt Date: 20130207
  Transmission Date: 20140127
  Serious: Yes (Death, Hospitalization)
  Sender: FDA-Public Use
  Company Number: INT_00186_2013

PATIENT
  Age: 28 Year
  Sex: Male

DRUGS (2)
  1. IMIPENEM [Suspect]
     Indication: PNEUMONIA
     Dosage: (500 MG 1X/6 HOURS)
  2. VALPROIC ACID [Suspect]
     Indication: PROPHYLAXIS

REACTIONS (8)
  - Malaise [None]
  - Renal failure [None]
  - Hypoxia [None]
  - Substance abuse [None]
  - Completed suicide [None]
  - Asphyxia [None]
  - Convulsion [None]
  - Drug interaction [None]
